FAERS Safety Report 4517319-6 (Version None)
Quarter: 2004Q4

REPORT INFORMATION
  Report Type: 
  Country: None (occurrence: None)
  Receive Date: 20041008
  Receipt Date: 20031121
  Transmission Date: 20050328
  Serious: No
  Sender: FDA-Public Use
  Company Number: 22552

PATIENT
  Age: 13 Year
  Sex: Male

DRUGS (1)
  1. MAXAIR [Suspect]
     Indication: ASTHMA
     Dosage: 400 MCG, AS NECESSARY, RESPIRATORY(INHALATION)
     Route: 055
     Dates: start: 20021101

REACTIONS (2)
  - SYNCOPE [None]
  - THERAPEUTIC RESPONSE DECREASED [None]
